FAERS Safety Report 11785738 (Version 1)
Quarter: 2015Q4

REPORT INFORMATION
  Report Type: Spontaneous
  Country: JP (occurrence: JP)
  Receive Date: 20151130
  Receipt Date: 20151130
  Transmission Date: 20160305
  Serious: Yes (Hospitalization)
  Sender: FDA-Public Use
  Company Number: JP-PFIZER INC-2015398743

PATIENT
  Age: 54 Year
  Sex: Female
  Weight: 42.9 kg

DRUGS (8)
  1. DAIKENCHUTO [Concomitant]
     Active Substance: HERBALS
  2. FUROSEMIDE. [Concomitant]
     Active Substance: FUROSEMIDE
  3. GASMOTIN [Concomitant]
     Active Substance: MOSAPRIDE CITRATE
  4. DOMPERIDONE [Concomitant]
     Active Substance: DOMPERIDONE
  5. BIOFERMIN R [Concomitant]
     Active Substance: BACILLUS SUBTILIS\LACTOBACILLUS ACIDOPHILUS\STREPTOCOCCUS FAECAIS
  6. PANTETHINE [Concomitant]
     Active Substance: PANTETHINE
  7. CAMOSTAT MESILATE [Concomitant]
     Active Substance: CAMOSTAT MESYLATE
  8. SUTENT [Suspect]
     Active Substance: SUNITINIB MALATE
     Indication: GASTROINTESTINAL STROMAL TUMOUR
     Dosage: 50 MG, 1X/DAY
     Route: 048
     Dates: start: 20150929

REACTIONS (3)
  - Hyperthermia [Unknown]
  - Palmar-plantar erythrodysaesthesia syndrome [Recovered/Resolved]
  - Pancytopenia [Unknown]

NARRATIVE: CASE EVENT DATE: 20151018
